FAERS Safety Report 4850923-4 (Version None)
Quarter: 2005Q4

REPORT INFORMATION
  Report Type: 
  Country: None (occurrence: None)
  Receive Date: 20051212
  Receipt Date: 20050726
  Transmission Date: 20060501
  Serious: No
  Sender: FDA-Public Use
  Company Number: CA-SANOFI-SYNTHELABO-A01200505230

PATIENT
  Age: 80 Year
  Sex: Female

DRUGS (3)
  1. PLAVIX [Suspect]
     Indication: PROPHYLAXIS
     Dosage: UNK
     Route: 048
     Dates: start: 20050101, end: 20050701
  2. PLAVIX [Suspect]
     Dosage: 75 MG EVERY OTHER DAY, AND THEN TO 75 MG EVERY 3 OR 4 DAYS
     Route: 048
     Dates: start: 20050701
  3. HYZAAR [Concomitant]
     Indication: DRUG USE FOR UNKNOWN INDICATION
     Route: 048

REACTIONS (6)
  - ANURIA [None]
  - CONTUSION [None]
  - DYSPNOEA [None]
  - HYPERHIDROSIS [None]
  - MUSCULOSKELETAL PAIN [None]
  - RENAL PAIN [None]
